FAERS Safety Report 25064535 (Version 1)
Quarter: 2025Q1

REPORT INFORMATION
  Report Type: Spontaneous
  Country: AE (occurrence: AE)
  Receive Date: 20250311
  Receipt Date: 20250311
  Transmission Date: 20250408
  Serious: Yes (Other)
  Sender: ELI LILLY AND COMPANY
  Company Number: AE-ELI_LILLY_AND_COMPANY-AE202503002579

PATIENT
  Age: 37 Year
  Sex: Male

DRUGS (3)
  1. EBGLYSS [Suspect]
     Active Substance: LEBRIKIZUMAB-LBKZ
     Indication: Dermatitis atopic
     Route: 058
  2. EBGLYSS [Suspect]
     Active Substance: LEBRIKIZUMAB-LBKZ
     Route: 058
  3. EBGLYSS [Suspect]
     Active Substance: LEBRIKIZUMAB-LBKZ

REACTIONS (1)
  - Adult T-cell lymphoma/leukaemia [Unknown]

NARRATIVE: CASE EVENT DATE: 20250303
